FAERS Safety Report 7804623-9 (Version None)
Quarter: 2011Q4

REPORT INFORMATION
  Report Type: 
  Country: None (occurrence: None)
  Receive Date: 20111010
  Receipt Date: 20111006
  Transmission Date: 20120403
  Serious: No
  Sender: FDA-Public Use
  Company Number: US-PFIZER INC-2011239401

PATIENT
  Sex: Female
  Weight: 78 kg

DRUGS (3)
  1. MAXZIDE [Concomitant]
     Dosage: 25 MG, 1X/DAY
  2. CHANTIX [Suspect]
     Indication: SMOKING CESSATION THERAPY
     Dosage: 0.5 MG, 1X/DAY
     Route: 048
     Dates: start: 20110922, end: 20110901
  3. CHANTIX [Suspect]
     Dosage: UNK
     Route: 048
     Dates: start: 20110901, end: 20111004

REACTIONS (1)
  - RASH [None]
